FAERS Safety Report 12108783 (Version 1)
Quarter: 2016Q1

REPORT INFORMATION
  Report Type: Spontaneous
  Country: US (occurrence: None)
  Receive Date: 20160222
  Receipt Date: 20160222
  Transmission Date: 20160526
  Serious: Yes (Disabling)
  Sender: FDA-Public Use
  Company Number: None

PATIENT
  Age: 53 Year
  Sex: Female
  Weight: 86.18 kg

DRUGS (16)
  1. CPAP [Concomitant]
     Active Substance: DEVICE
  2. OSTEO BI-FLEX [Concomitant]
     Active Substance: CHONDROITIN SULFATE A\GLUCOSAMINE
  3. GINGER ROOT [Concomitant]
  4. CLARITIN [Concomitant]
     Active Substance: LORATADINE
  5. BIOTIN [Concomitant]
     Active Substance: BIOTIN
  6. CIPROFLOXACN 500 MG TAB TEV 500 MG N TEVA [Suspect]
     Active Substance: CIPROFLOXACIN
     Indication: URINARY TRACT INFECTION
     Dosage: 500 MG./TWICE DAILY/FOR 7 DAYS TWICE DAILY TAKEN BY MOUTH
     Route: 048
     Dates: start: 20160121, end: 20160125
  7. ECHINACEA/GOLDENSEAL BLEND [Concomitant]
  8. GINKO BILOBA [Concomitant]
     Active Substance: GINKGO
  9. TUMERIC [Concomitant]
     Active Substance: TURMERIC
  10. MORINGA [Concomitant]
  11. MULTIVITAMIN [Concomitant]
     Active Substance: VITAMINS
  12. MAGNESIUM [Concomitant]
     Active Substance: MAGNESIUM
  13. VITAMIN D3 [Concomitant]
     Active Substance: CHOLECALCIFEROL
  14. CALCIUM [Concomitant]
     Active Substance: CALCIUM
  15. FISH OIL [Concomitant]
     Active Substance: FISH OIL
  16. VITAMIN B12 [Concomitant]
     Active Substance: CYANOCOBALAMIN

REACTIONS (13)
  - Depression [None]
  - Burning sensation [None]
  - Arthralgia [None]
  - Neck pain [None]
  - Musculoskeletal pain [None]
  - Back pain [None]
  - Crying [None]
  - Dyspnoea [None]
  - Dizziness [None]
  - Pain in extremity [None]
  - Myalgia [None]
  - Muscular weakness [None]
  - Depressed level of consciousness [None]

NARRATIVE: CASE EVENT DATE: 20160125
